FAERS Safety Report 7275245-6 (Version None)
Quarter: 2011Q1

REPORT INFORMATION
  Report Type: 
  Country: None (occurrence: None)
  Receive Date: 20110204
  Receipt Date: 20110131
  Transmission Date: 20110831
  Serious: Yes (Other)
  Sender: FDA-Public Use
  Company Number: US-PFIZER INC-2011022559

PATIENT
  Sex: Female
  Weight: 54.422 kg

DRUGS (1)
  1. ADVIL [Suspect]
     Dosage: UNK
     Dates: start: 20101130, end: 20110101

REACTIONS (2)
  - DERMATITIS ALLERGIC [None]
  - DRUG INEFFECTIVE [None]
